FAERS Safety Report 7113954-X (Version None)
Quarter: 2010Q4

REPORT INFORMATION
  Report Type: 
  Country: None (occurrence: None)
  Receive Date: 20101119
  Receipt Date: 20101110
  Transmission Date: 20110411
  Serious: Yes (Hospitalization)
  Sender: FDA-Public Use
  Company Number: A0855993A

PATIENT
  Sex: Female
  Weight: 166 kg

DRUGS (5)
  1. ELTROMBOPAG [Suspect]
     Indication: THROMBOCYTOPENIA
     Route: 048
     Dates: start: 20100202, end: 20100222
  2. ELTROMBOPAG [Suspect]
     Route: 048
     Dates: start: 20100223
  3. PEG-INTRON [Suspect]
     Indication: HEPATITIS C
     Dosage: 120UG WEEKLY
     Route: 058
     Dates: start: 20100223
  4. REBETOL [Suspect]
     Indication: HEPATITIS C
     Route: 048
     Dates: start: 20100223
  5. ARIPIPRAZOLE [Concomitant]
     Dosage: 5MG PER DAY

REACTIONS (14)
  - ABDOMINAL PAIN [None]
  - ANAEMIA [None]
  - BLOOD FIBRINOGEN DECREASED [None]
  - DIARRHOEA [None]
  - FAECALOMA [None]
  - GASTROINTESTINAL DISORDER [None]
  - GASTROINTESTINAL HAEMORRHAGE [None]
  - HEPATIC ENCEPHALOPATHY [None]
  - INTERNATIONAL NORMALISED RATIO INCREASED [None]
  - INTESTINAL OBSTRUCTION [None]
  - MESENTERIC VEIN THROMBOSIS [None]
  - PORTAL VEIN THROMBOSIS [None]
  - PYREXIA [None]
  - VOMITING [None]
